FAERS Safety Report 16249195 (Version 1)
Quarter: 2019Q2

REPORT INFORMATION
  Report Type: Spontaneous
  Country: RO (occurrence: RO)
  Receive Date: 20190429
  Receipt Date: 20190429
  Transmission Date: 20190711
  Serious: Yes (Hospitalization, Other)
  Sender: FDA-Public Use
  Company Number: RO-ACCORD-072948

PATIENT
  Age: 10 Year
  Sex: Male

DRUGS (2)
  1. ALPRAZOLAM. [Interacting]
     Active Substance: ALPRAZOLAM
     Indication: ANXIETY
     Dosage: 1/2-1/2-1/2
  2. SERTRALINE [Suspect]
     Active Substance: SERTRALINE HYDROCHLORIDE
     Indication: ANXIETY
     Dosage: 1/4 TABLETS/DAY

REACTIONS (3)
  - Psychotic disorder [Unknown]
  - Drug interaction [Unknown]
  - Underdose [Unknown]
